FAERS Safety Report 6179684-6 (Version None)
Quarter: 2009Q2

REPORT INFORMATION
  Report Type: 
  Country: None (occurrence: None)
  Receive Date: 20090505
  Receipt Date: 20090501
  Transmission Date: 20091009
  Serious: Yes (Life-Threatening, Other)
  Sender: FDA-Public Use
  Company Number: PHHY2009CA12351

PATIENT
  Sex: Male

DRUGS (7)
  1. CLOZARIL [Suspect]
     Indication: SCHIZOPHRENIA
     Dosage: 200 MG
     Route: 048
     Dates: start: 19931011, end: 20090501
  2. CHEMOTHERAPEUTICS NOS [Concomitant]
  3. CYCLOPHOSPHAMIDE [Concomitant]
     Dosage: 1620 MG, Q21 DAYS
  4. VINCRISTINE [Concomitant]
     Dosage: 1 MG, Q2/DAYS
  5. PREDNISONE [Concomitant]
     Dosage: 100 MG DAYS 1-5 OF CHEMO
  6. ALLOPURINOL [Concomitant]
     Dosage: 300 MG
  7. DOLASETRON [Concomitant]
     Dosage: 100 MG OF 1-3 DAYS OF CHEMO

REACTIONS (2)
  - LYMPHOMA [None]
  - NON-HODGKIN'S LYMPHOMA [None]
